FAERS Safety Report 6055852-9 (Version None)
Quarter: 2009Q1

REPORT INFORMATION
  Report Type: 
  Country: None (occurrence: None)
  Receive Date: 20090128
  Receipt Date: 20090120
  Transmission Date: 20090719
  Serious: Yes (Hospitalization)
  Sender: FDA-Public Use
  Company Number: FR-ASTRAZENECA-2009CG00255

PATIENT
  Age: 39 Year
  Sex: Female
  Weight: 56 kg

DRUGS (6)
  1. DIPRIVAN [Suspect]
     Indication: INDUCTION OF ANAESTHESIA
     Route: 042
  2. SUFENTANIL [Suspect]
     Indication: INDUCTION OF ANAESTHESIA
     Route: 042
  3. ATRACURIUM [Suspect]
     Indication: INDUCTION OF ANAESTHESIA
     Route: 042
  4. SEVOFLURANE [Concomitant]
     Indication: ANAESTHESIA
  5. CLONAZEPAM [Concomitant]
  6. CALCIUM VITAMIN D3 [Concomitant]

REACTIONS (1)
  - STRESS CARDIOMYOPATHY [None]
